FAERS Safety Report 12621742 (Version 1)
Quarter: 2016Q3

REPORT INFORMATION
  Report Type: Spontaneous
  Country: BR (occurrence: BR)
  Receive Date: 20160804
  Receipt Date: 20160804
  Transmission Date: 20161109
  Serious: Yes (Other)
  Sender: FDA-Public Use
  Company Number: BR-ACS-000437

PATIENT
  Age: 65 Year
  Sex: Male

DRUGS (6)
  1. MEROPENEM. [Suspect]
     Active Substance: MEROPENEM
     Indication: ENTEROBACTER INFECTION
     Route: 042
  2. ATROPINE. [Concomitant]
     Active Substance: ATROPINE
     Dosage: ATROPINE 1% IN OS
     Route: 061
  3. CEPHALOTHIN [Suspect]
     Active Substance: CEPHALOTHIN
     Route: 042
  4. CEFTAZIDIME. [Suspect]
     Active Substance: CEFTAZIDIME
     Dosage: INTRAVITREAL IN OS
     Route: 031
  5. VANCOMYCIN [Suspect]
     Active Substance: VANCOMYCIN
     Route: 031
  6. MOXIFLOXACIN. [Concomitant]
     Active Substance: MOXIFLOXACIN
     Dosage: MOXIFLOXACIN 0.5% IN OS
     Route: 061

REACTIONS (2)
  - Drug reaction with eosinophilia and systemic symptoms [Recovering/Resolving]
  - Off label use [Recovering/Resolving]
